FAERS Safety Report 8012804 (Version 2)
Quarter: 2018Q3

REPORT INFORMATION
  Report Type: Spontaneous
  Country: IT (occurrence: IT)
  Receive Date: 20110628
  Receipt Date: 20180815
  Transmission Date: 20181010
  Serious: Yes (Death, Other)
  Sender: FDA-Public Use
  Company Number: IT-PFIZER INC-2011139297

PATIENT
  Age: 74 Year
  Sex: Male

DRUGS (8)
  1. SIMVASTATIN. [Concomitant]
     Active Substance: SIMVASTATIN
     Dosage: UNK
  2. NEBIVOLOL. [Concomitant]
     Active Substance: NEBIVOLOL
     Dosage: UNK
  3. RASILEZ [Concomitant]
     Active Substance: ALISKIREN
     Dosage: UNK
  4. SUTENT [Suspect]
     Active Substance: SUNITINIB MALATE
     Indication: RENAL CANCER METASTATIC
     Dosage: 50 MG, DAILY
     Route: 048
     Dates: start: 20101130, end: 20110517
  5. ENALAPRIL MALEATE W/HYDROCHLOROTIAZIDE [Concomitant]
     Active Substance: ENALAPRIL MALEATE\HYDROCHLOROTHIAZIDE
     Dosage: UNK
  6. METOCLOPRAMIDE. [Concomitant]
     Active Substance: METOCLOPRAMIDE
     Dosage: UNK
  7. OXYCODONE AND ACETAMINOPHEN [Concomitant]
     Active Substance: ACETAMINOPHEN\OXYCODONE HYDROCHLORIDE
     Dosage: UNK
  8. ALLOPURINOL. [Concomitant]
     Active Substance: ALLOPURINOL
     Dosage: UNK

REACTIONS (14)
  - Cognitive disorder [Fatal]
  - Pulmonary oedema [Fatal]
  - Neoplasm progression [Unknown]
  - Dehydration [Fatal]
  - Platelet count decreased [Fatal]
  - Blood creatinine increased [Unknown]
  - Vomiting [Unknown]
  - Jaundice [Unknown]
  - Renal impairment [Fatal]
  - Leukopenia [Unknown]
  - Thrombocytopenia [Unknown]
  - Asthenia [Unknown]
  - Diarrhoea [Fatal]
  - Pain [Unknown]

NARRATIVE: CASE EVENT DATE: 20110517
